FAERS Safety Report 6304890-7 (Version None)
Quarter: 2009Q3

REPORT INFORMATION
  Report Type: 
  Country: None (occurrence: None)
  Receive Date: 20090811
  Receipt Date: 20090731
  Transmission Date: 20100115
  Serious: Yes (Hospitalization, Other)
  Sender: FDA-Public Use
  Company Number: FR-ELI_LILLY_AND_COMPANY-FR200907007108

PATIENT
  Age: 54 Year
  Sex: Male

DRUGS (7)
  1. ZYPREXA [Suspect]
     Dosage: 10 MG, DAILY (1/D)
     Route: 048
     Dates: start: 20090608, end: 20090708
  2. SEROPLEX [Concomitant]
     Dosage: 20 MG, DAILY (1/D)
     Route: 048
     Dates: start: 20090608, end: 20090708
  3. STILNOX [Concomitant]
     Route: 048
     Dates: start: 20090628
  4. FUROSEMIDE [Concomitant]
     Dosage: UNK, UNK
     Dates: start: 20090429
  5. LERCAN [Concomitant]
     Dates: start: 20040101
  6. PARIET [Concomitant]
     Dates: start: 20040101
  7. FLONASE [Concomitant]
     Dates: start: 20040101

REACTIONS (3)
  - BLOOD CREATINE PHOSPHOKINASE INCREASED [None]
  - BRAIN INJURY [None]
  - EPILEPSY [None]
